FAERS Safety Report 4472008-1 (Version None)
Quarter: 2004Q4

REPORT INFORMATION
  Report Type: 
  Country: None (occurrence: None)
  Receive Date: 20041007
  Receipt Date: 20040924
  Transmission Date: 20050328
  Serious: No
  Sender: FDA-Public Use
  Company Number: 2004CG01928

PATIENT
  Sex: Female

DRUGS (2)
  1. NAROPIN [Suspect]
     Indication: LOCAL ANAESTHESIA
     Dates: start: 20030101, end: 20030101
  2. CATAPRES [Suspect]
     Indication: LOCAL ANAESTHESIA
     Dates: start: 20030101, end: 20030101

REACTIONS (1)
  - NEURALGIA [None]
